APPROVED DRUG PRODUCT: LEUCOVORIN CALCIUM
Active Ingredient: LEUCOVORIN CALCIUM
Strength: EQ 350MG BASE/VIAL
Dosage Form/Route: INJECTABLE;INJECTION
Application: A040174 | Product #001
Applicant: TEVA PHARMACEUTICALS USA
Approved: Jun 12, 1997 | RLD: No | RS: No | Type: DISCN